FAERS Safety Report 4774145-0 (Version None)
Quarter: 2005Q3

REPORT INFORMATION
  Report Type: 
  Country: None (occurrence: None)
  Receive Date: 20050921
  Receipt Date: 20050909
  Transmission Date: 20060218
  Serious: Yes (Hospitalization)
  Sender: FDA-Public Use
  Company Number: DE-SOLVAY-00305002890

PATIENT
  Age: 13 Year
  Sex: Male

DRUGS (4)
  1. INSULIN HUMALOG (LILLY) - PARANDIAL [Concomitant]
     Indication: DIABETES MELLITUS INSULIN-DEPENDENT
     Dosage: DAILY DOSE:  UNKNOWN
     Route: 058
     Dates: start: 19990101
  2. FLUVOXAMINE MALEATE [Suspect]
     Indication: DEPRESSION
     Dosage: DAILY DOSE: 150 MILLIGRAM(S)
     Route: 048
     Dates: start: 20030801, end: 20050529
  3. FLUVOXAMINE MALEATE [Suspect]
     Dosage: DAILY DOSE: 125 MILLIGRAM(S)
     Route: 048
     Dates: start: 20050530, end: 20050710
  4. SEMILENTE NOVO - BASAL, AT NIGHT [Concomitant]
     Indication: DIABETES MELLITUS INSULIN-DEPENDENT
     Dosage: DAILY DOSE:  UNKNOWN
     Route: 058
     Dates: start: 19990101

REACTIONS (3)
  - DRUG INEFFECTIVE [None]
  - ENURESIS [None]
  - GROWTH RETARDATION [None]
